FAERS Safety Report 5731308-5 (Version None)
Quarter: 2008Q2

REPORT INFORMATION
  Report Type: 
  Country: None (occurrence: None)
  Receive Date: 20080505
  Receipt Date: 20080430
  Transmission Date: 20081010
  Serious: Yes (Other)
  Sender: FDA-Public Use
  Company Number: CHPA2008US07421

PATIENT
  Age: 77 Year
  Sex: Female

DRUGS (1)
  1. MAALOX ANTIACID/ANTIGAS MAX STR MULTI SYMPTOM (NCH)(MAGNESIUM HYDROXID [Suspect]
     Indication: STOMACH DISCOMFORT
     Dosage: 2 TSP, QD, ORAL
     Route: 048
     Dates: start: 20080428, end: 20080428

REACTIONS (1)
  - HYPERTENSION [None]
